FAERS Safety Report 13838141 (Version 2)
Quarter: 2017Q3

REPORT INFORMATION
  Report Type: Spontaneous
  Country: GB (occurrence: GB)
  Receive Date: 20170807
  Receipt Date: 20170807
  Transmission Date: 20171127
  Serious: Yes (Other)
  Sender: FDA-Public Use
  Company Number: GB-CIPLA LTD.-2017GB13405

PATIENT

DRUGS (7)
  1. METHYLPREDNISOLONE ACETATE. [Concomitant]
     Active Substance: METHYLPREDNISOLONE ACETATE
     Indication: ARTHROPATHY
     Dosage: UNK
     Route: 065
     Dates: start: 20170424, end: 20170501
  2. LIDOCAINE. [Concomitant]
     Active Substance: LIDOCAINE
     Indication: ARTHROPATHY
     Dosage: UNK
     Route: 055
     Dates: start: 20170424, end: 20170425
  3. TRAMADOL. [Concomitant]
     Active Substance: TRAMADOL
     Dosage: 2 DF, QID
     Route: 065
     Dates: start: 20170410
  4. RAMIPRIL. [Concomitant]
     Active Substance: RAMIPRIL
     Dosage: 1 DF, QD
     Route: 065
     Dates: start: 20170714
  5. SERTRALINE [Concomitant]
     Active Substance: SERTRALINE HYDROCHLORIDE
     Dosage: 1 DF, QD
     Route: 065
     Dates: start: 20170707
  6. OMEPRAZOLE. [Concomitant]
     Active Substance: OMEPRAZOLE
     Dosage: 1 DF, QD
     Route: 065
     Dates: start: 20161116
  7. AMLODIPINE [Suspect]
     Active Substance: AMLODIPINE BESYLATE
     Dosage: 5 MG, QD
     Route: 065
     Dates: start: 20170714

REACTIONS (2)
  - Lip swelling [Recovered/Resolved]
  - Pain [Recovered/Resolved]

NARRATIVE: CASE EVENT DATE: 20170714
